FAERS Safety Report 8288686-5 (Version None)
Quarter: 2012Q2

REPORT INFORMATION
  Report Type: 
  Country: None (occurrence: None)
  Receive Date: 20120417
  Receipt Date: 20120410
  Transmission Date: 20120825
  Serious: Yes (Hospitalization)
  Sender: FDA-Public Use
  Company Number: US-AMGEN-USASP2012022666

PATIENT
  Age: 34 Year
  Sex: Female

DRUGS (1)
  1. ENBREL [Suspect]
     Indication: PSORIATIC ARTHROPATHY
     Dosage: 50 MG, QWK
     Dates: start: 20060101, end: 20120408

REACTIONS (4)
  - FRACTURED COCCYX [None]
  - FALL [None]
  - PSORIATIC ARTHROPATHY [None]
  - UPPER LIMB FRACTURE [None]
